FAERS Safety Report 21190086 (Version 2)
Quarter: 2022Q3

REPORT INFORMATION
  Report Type: Spontaneous
  Country: PT (occurrence: PT)
  Receive Date: 20220809
  Receipt Date: 20220927
  Transmission Date: 20221026
  Serious: Yes (Death, Other)
  Sender: FDA-Public Use
  Company Number: None

PATIENT
  Age: 65 Year
  Sex: Male

DRUGS (2)
  1. TIGECYCLINE [Suspect]
     Active Substance: TIGECYCLINE
     Indication: Septic shock
     Dosage: LOADED DOSE 100 MG, FOLLOWED BY 50 MG EVERY 12 HOURS
     Route: 042
     Dates: start: 20220706, end: 20220721
  2. TIGECYCLINE [Suspect]
     Active Substance: TIGECYCLINE
     Indication: Staphylococcal infection

REACTIONS (4)
  - Hypoglycaemia [Fatal]
  - Cholestasis [Fatal]
  - Liver function test increased [Fatal]
  - Death [Fatal]

NARRATIVE: CASE EVENT DATE: 20220721
